FAERS Safety Report 25329780 (Version 1)
Quarter: 2025Q2

REPORT INFORMATION
  Report Type: Report from Study
  Country: CA (occurrence: CA)
  Receive Date: 20250519
  Receipt Date: 20250519
  Transmission Date: 20250716
  Serious: Yes (Other)
  Sender: TAKEDA
  Company Number: CA-TAKEDA-2018TUS012850

PATIENT
  Sex: Female

DRUGS (26)
  1. VEDOLIZUMAB [Suspect]
     Active Substance: VEDOLIZUMAB
     Indication: Colitis ulcerative
  2. VEDOLIZUMAB [Suspect]
     Active Substance: VEDOLIZUMAB
  3. VEDOLIZUMAB [Suspect]
     Active Substance: VEDOLIZUMAB
  4. VEDOLIZUMAB [Suspect]
     Active Substance: VEDOLIZUMAB
  5. VEDOLIZUMAB [Suspect]
     Active Substance: VEDOLIZUMAB
  6. VEDOLIZUMAB [Suspect]
     Active Substance: VEDOLIZUMAB
  7. VEDOLIZUMAB [Suspect]
     Active Substance: VEDOLIZUMAB
  8. VEDOLIZUMAB [Suspect]
     Active Substance: VEDOLIZUMAB
  9. VEDOLIZUMAB [Suspect]
     Active Substance: VEDOLIZUMAB
  10. VEDOLIZUMAB [Suspect]
     Active Substance: VEDOLIZUMAB
  11. VEDOLIZUMAB [Suspect]
     Active Substance: VEDOLIZUMAB
  12. VEDOLIZUMAB [Suspect]
     Active Substance: VEDOLIZUMAB
  13. PAXIL [Concomitant]
     Active Substance: PAROXETINE HYDROCHLORIDE
  14. Salofalk [Concomitant]
  15. ASACOL [Concomitant]
     Active Substance: MESALAMINE
  16. CORTIFOAM [Concomitant]
     Active Substance: HYDROCORTISONE ACETATE
  17. BUDESONIDE [Concomitant]
     Active Substance: BUDESONIDE
  18. RAMIPRIL [Concomitant]
     Active Substance: RAMIPRIL
  19. PROGESTERONE [Concomitant]
     Active Substance: PROGESTERONE
  20. ROSUVASTATIN [Concomitant]
     Active Substance: ROSUVASTATIN
  21. TOPIRAMATE [Concomitant]
     Active Substance: TOPIRAMATE
  22. AMITRIPTYLINE [Concomitant]
     Active Substance: AMITRIPTYLINE
  23. DOVONEX [Concomitant]
     Active Substance: CALCIPOTRIENE
  24. BETAMETHASONE DIPROPIONATE\CALCIPOTRIENE MONOHYDRATE [Concomitant]
     Active Substance: BETAMETHASONE DIPROPIONATE\CALCIPOTRIENE MONOHYDRATE
  25. ESTROGEL [Concomitant]
     Active Substance: ESTRADIOL
  26. AZITHROMYCIN [Concomitant]
     Active Substance: AZITHROMYCIN
     Indication: Pneumonia

REACTIONS (4)
  - Haematochezia [Unknown]
  - Frequent bowel movements [Recovered/Resolved]
  - Abdominal pain lower [Recovered/Resolved]
  - Stress [Unknown]
